FAERS Safety Report 14610740 (Version 3)
Quarter: 2019Q2

REPORT INFORMATION
  Report Type: Report from Study
  Country: FR (occurrence: FR)
  Receive Date: 20180308
  Receipt Date: 20190425
  Transmission Date: 20190711
  Serious: Yes (Hospitalization)
  Sender: FDA-Public Use
  Company Number: FR-ROCHE-2079727

PATIENT
  Age: 61 Year
  Sex: Male
  Weight: 92 kg

DRUGS (25)
  1. HELICIDINE [Concomitant]
     Active Substance: ESCARGOT
     Indication: TRACHEITIS
     Route: 048
     Dates: start: 20180403, end: 20180409
  2. METFORMIN [Concomitant]
     Active Substance: METFORMIN HYDROCHLORIDE
     Indication: DIABETES MELLITUS
     Route: 065
     Dates: start: 2009
  3. ZELITREX [Concomitant]
     Active Substance: VALACYCLOVIR HYDROCHLORIDE
     Indication: HERPES SIMPLEX
     Dosage: HERPES SIMPLEX TYPE 1 VIRUS INFECTION
     Route: 048
     Dates: start: 20180201, end: 20180213
  4. DEXERYL [GLYCEROL;PARAFFIN, LIQUID;WHITE SOFT PARAFFIN] [Concomitant]
     Indication: DRY SKIN
     Route: 065
     Dates: start: 20180816, end: 20180830
  5. APROVEL [Concomitant]
     Active Substance: IRBESARTAN
     Indication: HYPERTENSION
     Route: 065
     Dates: start: 2014
  6. SPASFON LYOC [Concomitant]
     Active Substance: PHLOROGLUCINOL
     Indication: PAIN
     Route: 065
     Dates: start: 20170926
  7. DIFFU K [Concomitant]
     Active Substance: POTASSIUM CHLORIDE
     Indication: HYPOKALAEMIA
     Route: 065
     Dates: start: 20180104
  8. ACTISOUFRE [Concomitant]
     Active Substance: SACCHAROMYCES CEREVISIAE\SODIUM SULFATE
     Indication: TRACHEITIS
     Dosage: INHALATION
     Route: 065
     Dates: start: 20180403, end: 20180410
  9. NOVORAPID [Concomitant]
     Active Substance: INSULIN ASPART
     Indication: DIABETES MELLITUS
     Route: 065
     Dates: start: 2009
  10. LANTUS [Concomitant]
     Active Substance: INSULIN GLARGINE
     Indication: DIABETES MELLITUS
     Route: 065
     Dates: start: 2009
  11. TRAMADOL. [Concomitant]
     Active Substance: TRAMADOL
     Indication: PAIN
     Route: 065
     Dates: start: 20171109
  12. IBUPROFENE [Concomitant]
     Active Substance: IBUPROFEN
     Indication: TRACHEITIS
     Route: 048
     Dates: start: 20180404, end: 20180408
  13. MALARONE [Concomitant]
     Active Substance: ATOVAQUONE\PROGUANIL HYDROCHLORIDE
     Indication: MALARIA PROPHYLAXIS
     Route: 065
     Dates: start: 20180517
  14. PLACEBO [Suspect]
     Active Substance: UNSPECIFIED INGREDIENT
     Indication: MALIGNANT MELANOMA
     Dosage: DATE OF MOST RECENT DOSE OF PLACEBO PRIOR TO AE ONSET 15 FEB 2018
     Route: 042
     Dates: start: 20180104
  15. VEMURAFENIB. [Suspect]
     Active Substance: VEMURAFENIB
     Indication: MALIGNANT MELANOMA
     Dosage: MOST RECENT DOSE (TOTAL NUMBER OF TABLETS 4) ON 22/FEB/2018?DOSE BLINDED
     Route: 048
     Dates: start: 20171207
  16. TRAMADOL. [Concomitant]
     Active Substance: TRAMADOL
     Indication: PAIN
     Route: 065
     Dates: start: 20171109
  17. XYLOCAINE [Concomitant]
     Active Substance: LIDOCAINE HYDROCHLORIDE
     Indication: APHTHOUS ULCER
     Route: 065
     Dates: start: 20180104, end: 20180119
  18. TAHOR [Concomitant]
     Active Substance: ATORVASTATIN CALCIUM
     Indication: HYPERTENSION
     Route: 065
     Dates: start: 20180611
  19. NERISONE [Concomitant]
     Active Substance: DIFLUCORTOLONE VALERATE
     Indication: PRURIGO
     Route: 061
     Dates: start: 20180830
  20. ECONAZOLE. [Concomitant]
     Active Substance: ECONAZOLE NITRATE
     Indication: INTERTRIGO
     Route: 065
     Dates: start: 20171109
  21. FORLAX [Concomitant]
     Active Substance: POLYETHYLENE GLYCOL 4000
     Indication: FUNCTIONAL GASTROINTESTINAL DISORDER
     Route: 065
     Dates: start: 20170926
  22. PAROEX [Concomitant]
     Active Substance: CHLORHEXIDINE GLUCONATE
     Indication: APHTHOUS ULCER
     Route: 065
     Dates: start: 20180104, end: 20180119
  23. AMOXICILLINE [AMOXICILLIN] [Concomitant]
     Active Substance: AMOXICILLIN
     Indication: TRACHEITIS
     Route: 048
     Dates: start: 20180403, end: 20180411
  24. MAGNE B6 [MAGNESIUM LACTATE;PYRIDOXINE HYDROCHLORIDE] [Concomitant]
     Indication: HYPOMAGNESAEMIA
     Route: 065
     Dates: start: 20180816
  25. COBIMETINIB. [Suspect]
     Active Substance: COBIMETINIB
     Indication: MALIGNANT MELANOMA
     Dosage: MOST RECENT DOSE 60 MG ON 22/FEB/2018 AND 21/FEB/2018
     Route: 048
     Dates: start: 20171207

REACTIONS (2)
  - Hyperthyroidism [Recovered/Resolved]
  - Lipase increased [Recovered/Resolved]

NARRATIVE: CASE EVENT DATE: 20180131
